FAERS Safety Report 15889413 (Version 8)
Quarter: 2019Q2

REPORT INFORMATION
  Report Type: Report from Study
  Country: TW (occurrence: TW)
  Receive Date: 20190130
  Receipt Date: 20190417
  Transmission Date: 20190711
  Serious: Yes (Hospitalization)
  Sender: FDA-Public Use
  Company Number: TW-PFIZER INC-2019042153

PATIENT
  Age: 51 Year
  Sex: Male
  Weight: 81.5 kg

DRUGS (12)
  1. PEMBROLIZUMAB. [Suspect]
     Active Substance: PEMBROLIZUMAB
     Dosage: 200 MG, EVERY 3 WEEKS
     Route: 042
     Dates: start: 20181122, end: 20181122
  2. PEMBROLIZUMAB. [Suspect]
     Active Substance: PEMBROLIZUMAB
     Dosage: 200 MG, EVERY 3 WEEKS
     Route: 042
     Dates: start: 20190214
  3. NORVASC [Concomitant]
     Active Substance: AMLODIPINE BESYLATE
     Indication: HYPERTENSION
     Dosage: 5 MG, UNK
     Dates: start: 20171221, end: 20190214
  4. CO-DIOVAN [Concomitant]
     Active Substance: HYDROCHLOROTHIAZIDE\VALSARTAN
     Indication: HYPERTENSION
     Dosage: 1 DF, UNK
     Dates: start: 20180111, end: 20190214
  5. AXITINIB [Suspect]
     Active Substance: AXITINIB
     Indication: RENAL CELL CARCINOMA
     Dosage: 5 MG, 2X/DAY (STARTING DOSE: 5 MILLIGRAM, BID; FLUCTUATED DOSES;)
     Route: 048
     Dates: start: 20171130, end: 20181121
  6. PEMBROLIZUMAB. [Suspect]
     Active Substance: PEMBROLIZUMAB
     Dosage: 200 MG, EVERY 3 WEEKS
     Route: 042
     Dates: start: 20181213, end: 20190103
  7. AXITINIB [Suspect]
     Active Substance: AXITINIB
     Dosage: 6 MG, UNK (TOTAL DAILY DOSE: 6 MG)
     Route: 048
     Dates: start: 20190103, end: 20190123
  8. AXITINIB [Suspect]
     Active Substance: AXITINIB
     Dosage: 6 MG, UNK (TOTAL DAILY DOSE: 6 MG)
     Route: 048
     Dates: start: 20181122, end: 20181212
  9. AXITINIB [Suspect]
     Active Substance: AXITINIB
     Dosage: 4 MG, UNK (TOTAL DAILY DOSE: 4 MG)
     Route: 048
     Dates: start: 20190214
  10. PEMBROLIZUMAB. [Suspect]
     Active Substance: PEMBROLIZUMAB
     Dosage: 200 MG, EVERY 3 WEEKS
     Route: 042
     Dates: start: 20190124, end: 20190124
  11. AXITINIB [Suspect]
     Active Substance: AXITINIB
     Dosage: 6 MG, UNK (TOTAL DAILY DOSE: 6 MG)
     Route: 048
     Dates: start: 20181213, end: 20190102
  12. PEMBROLIZUMAB. [Suspect]
     Active Substance: PEMBROLIZUMAB
     Indication: RENAL CELL CARCINOMA
     Dosage: 200 MG, EVERY 3 WEEKS (VOLUME OF INFUSION 108 ML)
     Route: 042
     Dates: start: 20171130, end: 20181101

REACTIONS (2)
  - Pneumonia [Recovered/Resolved]
  - Hypokalaemia [Recovered/Resolved]

NARRATIVE: CASE EVENT DATE: 20181122
